FAERS Safety Report 4942828-5 (Version None)
Quarter: 2006Q1

REPORT INFORMATION
  Report Type: 
  Country: None (occurrence: None)
  Receive Date: 20060309
  Receipt Date: 20060221
  Transmission Date: 20060701
  Serious: Yes (Other)
  Sender: FDA-Public Use
  Company Number: S06-BEL-00982-01

PATIENT
  Age: 69 Year
  Sex: Male

DRUGS (6)
  1. ESCITALOPRAM OXALATE [Suspect]
     Indication: DEPRESSION
     Dosage: 10 MG QD PO
     Route: 048
     Dates: start: 20050927, end: 20051106
  2. ESCITALOPRAM OXALATE [Suspect]
     Indication: DEPRESSION
     Dosage: 5 MG QD PO
     Route: 048
     Dates: start: 20051107, end: 20051108
  3. PRAZEPAM [Concomitant]
  4. SYMBICORT [Concomitant]
  5. TIOTROPIUM BROMIDE [Concomitant]
  6. LORAZEPAM [Concomitant]

REACTIONS (8)
  - BALANCE DISORDER [None]
  - DYSARTHRIA [None]
  - DYSKINESIA [None]
  - IMPAIRED DRIVING ABILITY [None]
  - MUSCLE RIGIDITY [None]
  - NERVOUSNESS [None]
  - SELF-MEDICATION [None]
  - TARDIVE DYSKINESIA [None]
